FAERS Safety Report 5564904-9 (Version None)
Quarter: 2007Q4

REPORT INFORMATION
  Report Type: 
  Country: None (occurrence: None)
  Receive Date: 20071218
  Receipt Date: 20071211
  Transmission Date: 20080405
  Serious: Yes (Other)
  Sender: FDA-Public Use
  Company Number: A0641703A

PATIENT
  Age: 15 Year
  Sex: Female

DRUGS (4)
  1. PAXIL [Suspect]
     Indication: DEPRESSION
     Dosage: 20MG PER DAY
     Route: 048
     Dates: start: 19991006, end: 19991001
  2. EXTRA STRENGTH TYLENOL [Suspect]
     Route: 048
     Dates: start: 19991021, end: 19991021
  3. BENADRYL [Suspect]
     Route: 048
     Dates: start: 19991021, end: 19991021
  4. ADVIL LIQUI-GELS [Suspect]
     Dosage: 2400MG SINGLE DOSE
     Route: 048
     Dates: start: 19991021, end: 19991021

REACTIONS (10)
  - AGITATION [None]
  - BIPOLAR DISORDER [None]
  - BIPOLAR I DISORDER [None]
  - DEPRESSION [None]
  - MALAISE [None]
  - RESTLESSNESS [None]
  - SELF-INJURIOUS IDEATION [None]
  - SUICIDAL IDEATION [None]
  - SUICIDE ATTEMPT [None]
  - VOMITING [None]
